FAERS Safety Report 25812157 (Version 1)
Quarter: 2025Q3

REPORT INFORMATION
  Report Type: Spontaneous
  Country: US (occurrence: None)
  Receive Date: 20250916
  Receipt Date: 20250916
  Transmission Date: 20251020
  Serious: Yes (Hospitalization)
  Sender: FDA-CTU
  Company Number: None

PATIENT
  Age: 83 Year
  Sex: Female

DRUGS (13)
  1. LENALIDOMIDE [Suspect]
     Active Substance: LENALIDOMIDE
     Indication: Plasma cell myeloma
     Dosage: FREQUENCY : DAILY;?
     Route: 048
     Dates: start: 20250908, end: 20250909
  2. acyclovir 200mg [Concomitant]
  3. DARZALEX [Concomitant]
     Active Substance: DARATUMUMAB
  4. dexamethasone 4mg/ml [Concomitant]
  5. ASPIRIN [Concomitant]
     Active Substance: ASPIRIN
  6. famotidine 10mg [Concomitant]
  7. latanoprost 0.005% ophth drops [Concomitant]
  8. optimal d3 14,000iu [Concomitant]
  9. PANTOPRAZOLE SODIUM [Concomitant]
     Active Substance: PANTOPRAZOLE SODIUM
  10. SYNTHROID [Concomitant]
     Active Substance: LEVOTHYROXINE SODIUM
  11. timolol 0.5% GF ophth drops [Concomitant]
  12. TRAMADOL [Concomitant]
     Active Substance: TRAMADOL
  13. ZOFRAN [Concomitant]
     Active Substance: ONDANSETRON HYDROCHLORIDE

REACTIONS (2)
  - Haemoglobin decreased [None]
  - Therapy interrupted [None]

NARRATIVE: CASE EVENT DATE: 20250908
